FAERS Safety Report 12936769 (Version 5)
Quarter: 2017Q1

REPORT INFORMATION
  Report Type: Spontaneous
  Country: US (occurrence: US)
  Receive Date: 20161114
  Receipt Date: 20170324
  Transmission Date: 20170428
  Serious: Yes (Hospitalization)
  Sender: FDA-Public Use
  Company Number: US-TAIHO ONCOLOGY INC-EU-2016-02892

PATIENT
  Age: 66 Year
  Sex: Female

DRUGS (8)
  1. LONSURF [Suspect]
     Active Substance: TIPIRACIL HYDROCHLORIDE\TRIFLURIDINE
     Indication: COLON CANCER
     Route: 048
     Dates: start: 20161005, end: 2016
  2. OXYCODONE [Concomitant]
     Active Substance: OXYCODONE
     Dosage: NI
  3. IMITREX [Concomitant]
     Active Substance: SUMATRIPTAN SUCCINATE
     Dosage: NI
  4. ZOFRAN [Concomitant]
     Active Substance: ONDANSETRON HYDROCHLORIDE
     Dosage: NI
  5. NORVASC [Concomitant]
     Active Substance: AMLODIPINE BESYLATE
     Dosage: NI
  6. LEVOTHYROXINE. [Concomitant]
     Active Substance: LEVOTHYROXINE
     Dosage: NI
  7. LISINOPRIL. [Concomitant]
     Active Substance: LISINOPRIL
     Dosage: NI
  8. XANAX [Concomitant]
     Active Substance: ALPRAZOLAM
     Dosage: NI

REACTIONS (14)
  - Dizziness [Unknown]
  - Hepatic enzyme increased [Unknown]
  - Fall [Recovered/Resolved]
  - Back injury [Unknown]
  - Decreased appetite [Unknown]
  - Malaise [Unknown]
  - Back pain [Unknown]
  - Eye injury [Unknown]
  - White blood cell count decreased [Unknown]
  - Retching [Unknown]
  - Weight decreased [Unknown]
  - Diarrhoea [Unknown]
  - Neutrophil count decreased [Unknown]
  - Cytopenia [Unknown]

NARRATIVE: CASE EVENT DATE: 2016
